FAERS Safety Report 12987375 (Version 1)
Quarter: 2016Q4

REPORT INFORMATION
  Report Type: Spontaneous
  Country: US (occurrence: US)
  Receive Date: 20161130
  Receipt Date: 20161130
  Transmission Date: 20170207
  Serious: No
  Sender: FDA-Public Use
  Company Number: US-ENDO PHARMACEUTICALS INC.-2016-000679

PATIENT
  Sex: Female
  Weight: 81.72 kg

DRUGS (2)
  1. LISINOPRIL TABLETS [Suspect]
     Active Substance: LISINOPRIL
     Indication: HYPERTENSION
     Route: 048
     Dates: start: 2015, end: 201506
  2. HYDROCHLOROTHIAZIDE TABLETS [Suspect]
     Active Substance: HYDROCHLOROTHIAZIDE
     Indication: HYPERTENSION
     Route: 048
     Dates: start: 2015, end: 201506

REACTIONS (4)
  - Thinking abnormal [Unknown]
  - Feeling abnormal [Unknown]
  - Rash [Unknown]
  - Vision blurred [Unknown]

NARRATIVE: CASE EVENT DATE: 2015
